FAERS Safety Report 7170251-4 (Version None)
Quarter: 2010Q4

REPORT INFORMATION
  Report Type: 
  Country: None (occurrence: None)
  Receive Date: 20101217
  Receipt Date: 20101208
  Transmission Date: 20110411
  Serious: Yes (Other)
  Sender: FDA-Public Use
  Company Number: US-PFIZER INC-2010170078

PATIENT
  Sex: Female
  Weight: 52.154 kg

DRUGS (6)
  1. ADVIL [Suspect]
     Dosage: 1 LIQUI-GEL FOUR TIMES A DAY
     Route: 048
     Dates: start: 20100101
  2. ARMOUR THYROID [Concomitant]
  3. WELLBUTRIN [Concomitant]
  4. FREE FATTY ACID [Concomitant]
  5. ASCORBIC ACID [Concomitant]
  6. VITAMIN D [Concomitant]

REACTIONS (3)
  - BLISTER [None]
  - INFLUENZA [None]
  - RASH [None]
